FAERS Safety Report 7349338-9 (Version None)
Quarter: 2011Q1

REPORT INFORMATION
  Report Type: 
  Country: None (occurrence: None)
  Receive Date: 20110314
  Receipt Date: 20110303
  Transmission Date: 20110831
  Serious: Yes (Hospitalization, Other)
  Sender: FDA-Public Use
  Company Number: US-RB-023314-11

PATIENT
  Age: 25 Year
  Sex: Female

DRUGS (3)
  1. OXYCONTIN [Suspect]
     Indication: INTENTIONAL DRUG MISUSE
     Dosage: DOSING DETAILS UNKNOWN
     Route: 065
  2. SUBOXONE [Suspect]
     Indication: INTENTIONAL DRUG MISUSE
     Dosage: DOSING DETAILS UNKNOWN
     Route: 065
  3. HEROIN [Suspect]
     Indication: INTENTIONAL DRUG MISUSE
     Dosage: DOSING DETAILS UNKNOWN
     Route: 065

REACTIONS (3)
  - SUBARACHNOID HAEMORRHAGE [None]
  - BRAIN DEATH [None]
  - INTENTIONAL DRUG MISUSE [None]
